FAERS Safety Report 8141543-7 (Version None)
Quarter: 2012Q1

REPORT INFORMATION
  Report Type: 
  Country: None (occurrence: None)
  Receive Date: 20120216
  Receipt Date: 20120214
  Transmission Date: 20120608
  Serious: Yes (Hospitalization)
  Sender: FDA-Public Use
  Company Number: US-B.I. PHARMACEUTICALS,INC./RIDGEFIELD-2012-BP-02840BP

PATIENT
  Sex: Female

DRUGS (8)
  1. CARVEDILOL [Concomitant]
     Dosage: 6.25 MG
     Route: 048
     Dates: start: 20120113
  2. LISINOPRIL [Concomitant]
     Dosage: 5 MG
     Route: 048
     Dates: start: 20120209
  3. FISH OIL [Concomitant]
     Indication: SUPPLEMENTATION THERAPY
     Dosage: 3600 MG
     Route: 048
     Dates: start: 20110501
  4. PRADAXA [Suspect]
     Indication: ATRIAL FIBRILLATION
     Dosage: 300 MG
     Route: 048
     Dates: start: 20110531, end: 20120212
  5. RANEXA [Concomitant]
     Dates: start: 20120113, end: 20120131
  6. OMEPRAZOLE [Concomitant]
     Dosage: 20 MG
     Route: 048
     Dates: start: 20120207
  7. PRAVASTATIN [Concomitant]
     Dates: start: 20110701
  8. RAMIPRIL [Concomitant]
     Dosage: 1.25 MG
     Route: 048
     Dates: start: 20120201

REACTIONS (5)
  - ORAL PRURITUS [None]
  - STOMATITIS [None]
  - CHEST PAIN [None]
  - ASTHENIA [None]
  - MYOCARDIAL INFARCTION [None]
